FAERS Safety Report 5958834-8 (Version None)
Quarter: 2008Q4

REPORT INFORMATION
  Report Type: 
  Country: None (occurrence: None)
  Receive Date: 20081117
  Receipt Date: 20080825
  Transmission Date: 20090506
  Serious: Yes (Hospitalization)
  Sender: FDA-Public Use
  Company Number: CHPA2008US14028

PATIENT
  Sex: Female

DRUGS (1)
  1. EXCEDRIN EXTRA STRENGTH (NCH) (CAFFEINE CITRATE, ACETYLSALICYLIC ACID, [Suspect]
     Indication: HEADACHE
     Dosage: 2 DF, QHS, ORAL
     Route: 048
     Dates: start: 20080820, end: 20080820

REACTIONS (2)
  - HYPERSENSITIVITY [None]
  - RESPIRATORY TRACT CONGESTION [None]
